FAERS Safety Report 6089459-4 (Version None)
Quarter: 2009Q1

REPORT INFORMATION
  Report Type: 
  Country: None (occurrence: None)
  Receive Date: 20090224
  Receipt Date: 20090210
  Transmission Date: 20090719
  Serious: Yes (Other)
  Sender: FDA-Public Use
  Company Number: DE-ROCHE-609720

PATIENT
  Sex: Female

DRUGS (5)
  1. TAMIFLU [Suspect]
     Route: 048
     Dates: start: 20090115, end: 20090116
  2. IBUPROFEN [Concomitant]
     Dosage: SEVERAL DOSES WITHIN 24 HOURS BEFORE THE EVENTS
  3. ACETAMINOPHEN [Concomitant]
     Dosage: SEVERAL DOSES WITHIN 24 HOURS BEFORE THE EVENTS
  4. VALPROATE SODIUM [Concomitant]
     Indication: EPILEPSY
  5. BROMAZEPAM [Concomitant]
     Indication: EPILEPSY

REACTIONS (4)
  - AGGRESSION [None]
  - CONVULSION [None]
  - INSOMNIA [None]
  - UNRESPONSIVE TO STIMULI [None]
